FAERS Safety Report 6864914-5 (Version None)
Quarter: 2010Q3

REPORT INFORMATION
  Report Type: 
  Country: None (occurrence: None)
  Receive Date: 20100721
  Receipt Date: 20080519
  Transmission Date: 20110219
  Serious: No
  Sender: FDA-Public Use
  Company Number: US-PFIZER INC-2008030258

PATIENT
  Sex: Female
  Weight: 50.35 kg

DRUGS (4)
  1. CHANTIX [Suspect]
     Indication: SMOKING CESSATION THERAPY
     Dates: start: 20080325
  2. TOPAMAX [Concomitant]
     Indication: BIPOLAR DISORDER
  3. CLONAZEPAM [Concomitant]
     Indication: BIPOLAR DISORDER
  4. LAMICTAL [Concomitant]
     Indication: BIPOLAR DISORDER

REACTIONS (9)
  - ABNORMAL DREAMS [None]
  - AGITATION [None]
  - DIARRHOEA [None]
  - DIZZINESS [None]
  - FLATULENCE [None]
  - MOOD SWINGS [None]
  - NAUSEA [None]
  - NIGHTMARE [None]
  - VOMITING [None]
